FAERS Safety Report 18998663 (Version 1)
Quarter: 2021Q1

REPORT INFORMATION
  Report Type: Spontaneous
  Country: DE (occurrence: DE)
  Receive Date: 20210311
  Receipt Date: 20210311
  Transmission Date: 20210420
  Serious: Yes (Hospitalization)
  Sender: FDA-Public Use
  Company Number: DE-TEVA-2021-DE-1888063

PATIENT
  Age: 85 Year
  Sex: Male
  Weight: 75 kg

DRUGS (14)
  1. AMLODIPIN [Suspect]
     Active Substance: AMLODIPINE BESYLATE
     Dosage: 10 MILLIGRAM DAILY; 1?0?0?0
     Route: 048
  2. FUROSEMID [Suspect]
     Active Substance: FUROSEMIDE
     Dosage: .5 DOSAGE FORMS DAILY; 500 MG, 0.5?0?0?0
     Route: 048
  3. SIMVASTATIN. [Concomitant]
     Active Substance: SIMVASTATIN
     Dosage: 20 MILLIGRAM DAILY; 0?0?0?1
     Route: 048
  4. TILIDINE/NALOXONE [Concomitant]
     Active Substance: NALOXONE HYDROCHLORIDE\TILIDINE HYDROCHLORIDE
     Dosage: 2 DOSAGE FORMS DAILY; 4|50 MG, 1?0?1?0
     Route: 048
  5. TAMSULOSIN [Concomitant]
     Active Substance: TAMSULOSIN
     Dosage: .4 MILLIGRAM DAILY; 0?1?0?0
     Route: 048
  6. METAMIZOL [Suspect]
     Active Substance: METAMIZOLE SODIUM
     Dosage: 2000 MILLIGRAM DAILY; 500 MG, 1?1?1?1
     Route: 048
  7. DIGITOXIN [Suspect]
     Active Substance: DIGITOXIN
     Dosage: .5 MILLIGRAM DAILY; 1?0?0?0
     Route: 048
  8. ACTRAPHANE 30/70 FLEXPEN 100I.E./ML [Concomitant]
     Dosage: 90 | 210 IU, 20?0?10?0
     Route: 030
  9. APIXABAN [Concomitant]
     Active Substance: APIXABAN
     Dosage: 5 MILLIGRAM DAILY; 1?0?1?0
     Route: 048
  10. ALLOPURINOL. [Concomitant]
     Active Substance: ALLOPURINOL
     Dosage: 100 MILLIGRAM DAILY; 1?0?0?0
     Route: 048
  11. ENALAPRIL [Suspect]
     Active Substance: ENALAPRIL
     Dosage: 4 DOSAGE FORMS DAILY; 10 MG, 2?0?2?0
     Route: 048
  12. DOXAZOSIN [Suspect]
     Active Substance: DOXAZOSIN MESYLATE
     Dosage: 4 MILLIGRAM DAILY; 1?0?0?0
     Route: 048
  13. MOXONIDIN [Suspect]
     Active Substance: MOXONIDINE
     Dosage: .4 MILLIGRAM DAILY; 1?0?1?0
     Route: 048
  14. MIRTAZAPIN [Concomitant]
     Active Substance: MIRTAZAPINE
     Dosage: 15 MILLIGRAM DAILY; 0?0?0?1
     Route: 048

REACTIONS (2)
  - Pain in extremity [Unknown]
  - Product monitoring error [Unknown]

NARRATIVE: CASE EVENT DATE: 20190708
